FAERS Safety Report 4312859-7 (Version None)
Quarter: 2004Q1

REPORT INFORMATION
  Report Type: 
  Country: None (occurrence: None)
  Receive Date: 20040304
  Receipt Date: 20040219
  Transmission Date: 20041129
  Serious: Yes (Death, Hospitalization)
  Sender: FDA-Public Use
  Company Number: HQWYE166219FEB04

PATIENT
  Age: 59 Year
  Sex: Male

DRUGS (8)
  1. CONCOR (BISOPROLOL, TABLET) [Suspect]
     Indication: HYPERTENSION
     Dosage: 7.5 MG 1X PER 1 DAY/^SINCE YEARS^
     Dates: end: 20031025
  2. DIAZEPAM [Suspect]
     Indication: PAIN
     Dosage: 45 MG 1X PER 1 DAY ORAL
     Route: 048
     Dates: start: 20031011, end: 20031016
  3. PAROXETINE HCL [Suspect]
     Indication: PAIN
     Dosage: 10 MG 1X PER 1 DAY
     Route: 048
     Dates: start: 20031009, end: 20031018
  4. ALLOPURINOL [Concomitant]
  5. ACETYLSALICYLIC ACID SRT [Concomitant]
  6. GLYBURIDE [Concomitant]
  7. METFORMIN HCL [Concomitant]
  8. VIOXX [Concomitant]

REACTIONS (7)
  - ASTHENIA [None]
  - CONFUSIONAL STATE [None]
  - DRUG INTERACTION [None]
  - PERSONALITY CHANGE [None]
  - SOMNOLENCE [None]
  - URINARY TRACT INFECTION [None]
  - VOMITING [None]
